FAERS Safety Report 7985819-2 (Version None)
Quarter: 2011Q4

REPORT INFORMATION
  Report Type: 
  Country: None (occurrence: None)
  Receive Date: 20111214
  Receipt Date: 20111130
  Transmission Date: 20120403
  Serious: Yes (Death, Hospitalization, Other)
  Sender: FDA-Public Use
  Company Number: 2011MA017047

PATIENT
  Age: 78 Year
  Sex: Female
  Weight: 68.0396 kg

DRUGS (46)
  1. BEXTRA [Concomitant]
  2. FUROSEMIDE [Concomitant]
  3. ISOSORBIDE DINITRATE [Concomitant]
  4. METOPROLOL TARTRATE [Concomitant]
  5. THEOPHYLLINE [Concomitant]
  6. ZOLPIDEM [Concomitant]
  7. ADVAIR DISKUS 100/50 [Concomitant]
  8. CALAN [Concomitant]
  9. CHANTIX [Concomitant]
  10. CLOTRIMAZOLE [Concomitant]
  11. SIMVASTATIN [Concomitant]
  12. ZOCOR [Concomitant]
  13. ACTONEL [Concomitant]
  14. ASTELIN [Concomitant]
  15. CLARITIN [Concomitant]
  16. MAG-OXIDE [Concomitant]
  17. NOLVADEX [Concomitant]
  18. PROPAFENONE HCL [Concomitant]
  19. IV ANTIBIOTICS [Concomitant]
  20. DIGOXIN [Suspect]
     Dosage: 0.25 MG;QD;PO
     Route: 048
     Dates: start: 20040809, end: 20071110
  21. CLONAZEPAM [Concomitant]
  22. LEXAPRO [Concomitant]
  23. MELOXICAM [Concomitant]
  24. NITROGLYCERIN [Concomitant]
  25. ALBUTEROL [Concomitant]
  26. AZITHROMYCIN [Concomitant]
  27. COMBIVENT [Concomitant]
  28. PRAVACHOL [Concomitant]
  29. PREVACID [Concomitant]
  30. RYTHMOL [Concomitant]
  31. LASIX [Concomitant]
  32. DARVOCET-N 100 [Concomitant]
  33. LEVAQUIN [Concomitant]
  34. NAPROXEN [Concomitant]
  35. PROTONIX [Concomitant]
  36. TAMOXIFEN [Concomitant]
  37. VERAPAMIL EXTENDED-RELEASE [Concomitant]
  38. ASPIRIN [Concomitant]
  39. LORATADINE [Concomitant]
  40. NITROSTAT [Concomitant]
  41. PROAIR HFA [Concomitant]
  42. DIGIBIND [Concomitant]
  43. HYDROCODONE [Concomitant]
  44. PAXIL [Concomitant]
  45. QUININE SULFATE [Concomitant]
  46. IMDUR [Concomitant]

REACTIONS (48)
  - ATRIAL FIBRILLATION [None]
  - CONTUSION [None]
  - MITRAL VALVE INCOMPETENCE [None]
  - CONDITION AGGRAVATED [None]
  - CARDIAC FAILURE CONGESTIVE [None]
  - URINARY TRACT INFECTION [None]
  - UPPER LIMB FRACTURE [None]
  - MULTIPLE INJURIES [None]
  - MUSCULAR WEAKNESS [None]
  - OBSTRUCTIVE AIRWAYS DISORDER [None]
  - CHEST PAIN [None]
  - ATAXIA [None]
  - DEEP VEIN THROMBOSIS [None]
  - GENERALISED OEDEMA [None]
  - RENAL ATROPHY [None]
  - HEART RATE IRREGULAR [None]
  - LEFT VENTRICULAR HYPERTROPHY [None]
  - RIGHT ATRIAL DILATATION [None]
  - ECONOMIC PROBLEM [None]
  - UNEVALUABLE EVENT [None]
  - CORONARY ARTERY DISEASE [None]
  - RENAL FAILURE [None]
  - CORONARY ARTERY STENOSIS [None]
  - MITRAL VALVE PROLAPSE [None]
  - TRICUSPID VALVE INCOMPETENCE [None]
  - OEDEMA PERIPHERAL [None]
  - DIVERTICULUM INTESTINAL [None]
  - FALL [None]
  - ACCIDENT [None]
  - CORONARY ARTERY ANEURYSM [None]
  - ATRIAL SEPTAL DEFECT [None]
  - DYSPNOEA [None]
  - LOWER RESPIRATORY TRACT INFECTION [None]
  - TOXICITY TO VARIOUS AGENTS [None]
  - LACERATION [None]
  - SYNCOPE [None]
  - CARDIOMEGALY [None]
  - CARDIOACTIVE DRUG LEVEL ABOVE THERAPEUTIC [None]
  - PULMONARY VALVE INCOMPETENCE [None]
  - ANGINA PECTORIS [None]
  - CHRONIC OBSTRUCTIVE PULMONARY DISEASE [None]
  - PRESYNCOPE [None]
  - BRADYCARDIA [None]
  - DEHYDRATION [None]
  - CONFUSIONAL STATE [None]
  - VENTRICULAR DYSFUNCTION [None]
  - PULMONARY HYPERTENSION [None]
  - BRAIN NATRIURETIC PEPTIDE INCREASED [None]
